FAERS Safety Report 8361457-7 (Version None)
Quarter: 2012Q2

REPORT INFORMATION
  Report Type: 
  Country: None (occurrence: None)
  Receive Date: 20120514
  Receipt Date: 20120128
  Transmission Date: 20120825
  Serious: Yes (Death, Life-Threatening)
  Sender: FDA-Public Use
  Company Number: PAL-0001-2012

PATIENT
  Age: 40 Year
  Sex: Male

DRUGS (4)
  1. BROMAZEPAM [Concomitant]
  2. IMPAVIDO (MILTEFOSINE) MILTEFOSINE), [Suspect]
     Indication: LEISHMANIASIS
     Dosage: 100 MG (50 MG, 2 IN 1 D), ORAL
     Route: 048
     Dates: start: 20120116, end: 20120126
  3. LOSARTIL AND HYDROCHLOROTHIAZIDE [Concomitant]
  4. AMBISOME [Suspect]
     Indication: LEISHMANIASIS
     Dosage: 220 MG (220 MG, ONCE) INTRAVENOUS
     Route: 042
     Dates: start: 20120119, end: 20120126

REACTIONS (8)
  - ABDOMINAL PAIN [None]
  - WEIGHT INCREASED [None]
  - NAUSEA [None]
  - HAEMOGLOBIN DECREASED [None]
  - HYPERTENSION [None]
  - CHEST PAIN [None]
  - VOMITING [None]
  - CONDITION AGGRAVATED [None]
